FAERS Safety Report 16568357 (Version 2)
Quarter: 2019Q3

REPORT INFORMATION
  Report Type: Spontaneous
  Country: FR (occurrence: FR)
  Receive Date: 20190712
  Receipt Date: 20190722
  Transmission Date: 20191004
  Serious: Yes (Other)
  Sender: FDA-Public Use
  Company Number: FR-SA-2019SA186686

PATIENT
  Age: 76 Year
  Sex: Female

DRUGS (10)
  1. PANTOPRAZOLE [Concomitant]
     Active Substance: PANTOPRAZOLE
     Route: 065
  2. SERETIDE [Concomitant]
     Active Substance: FLUTICASONE PROPIONATE\SALMETEROL XINAFOATE
     Route: 065
  3. LOVENOX [Suspect]
     Active Substance: ENOXAPARIN SODIUM
     Dosage: UNK
     Route: 058
     Dates: start: 20190527, end: 20190605
  4. UVEDOSE [Concomitant]
     Active Substance: CHOLECALCIFEROL
     Route: 048
  5. ALDACTONE [Concomitant]
     Active Substance: SPIRONOLACTONE
     Dosage: UNK
     Route: 065
  6. PYOSTACINE [Concomitant]
     Active Substance: PRISTINAMYCIN
     Indication: ARTHRITIS BACTERIAL
     Dosage: UNK
     Route: 048
     Dates: start: 20190529, end: 20190603
  7. AUGMENTIN [Concomitant]
     Active Substance: AMOXICILLIN\CLAVULANATE POTASSIUM
     Route: 048
  8. PROPRANOLOL [Concomitant]
     Active Substance: PROPRANOLOL HYDROCHLORIDE
  9. PARACETAMOL [Concomitant]
     Active Substance: ACETAMINOPHEN
     Route: 065
  10. OFLOCET [OFLOXACIN] [Concomitant]
     Active Substance: OFLOXACIN
     Indication: ARTHRITIS BACTERIAL
     Dosage: UNK
     Route: 048
     Dates: start: 20190529, end: 20190603

REACTIONS (1)
  - Vascular purpura [Recovered/Resolved]

NARRATIVE: CASE EVENT DATE: 20190602
